FAERS Safety Report 16574768 (Version 4)
Quarter: 2019Q3

REPORT INFORMATION
  Report Type: Spontaneous
  Country: JP (occurrence: JP)
  Receive Date: 20190715
  Receipt Date: 20190816
  Transmission Date: 20191004
  Serious: Yes (Hospitalization, Other)
  Sender: FDA-Public Use
  Company Number: JP-ALLERGAN-1928346US

PATIENT
  Sex: Male

DRUGS (14)
  1. VASOLAN [Concomitant]
  2. BAYASPIRIN [Concomitant]
     Active Substance: ASPIRIN
  3. RIONA [Concomitant]
     Active Substance: FERRIC CITRATE ANHYDROUS
  4. MAINTATE [Concomitant]
     Active Substance: BISOPROLOL FUMARATE
     Dosage: UNK
  5. HEPARIN CALCIUM [Concomitant]
     Active Substance: HEPARIN CALCIUM
     Dosage: UNK
     Dates: start: 20190607, end: 20190617
  6. DOPS [Concomitant]
     Active Substance: DROXIDOPA
  7. LINACLOTIDE - BP [Suspect]
     Active Substance: LINACLOTIDE
     Indication: CONSTIPATION
     Dosage: 0.25 MG, QD, BEFORE A MEAL
     Route: 048
     Dates: start: 20190622, end: 20190623
  8. MILLIS [Concomitant]
  9. PARSABIV [Concomitant]
     Active Substance: ETELCALCETIDE HYDROCHLORIDE
  10. CALONAL [Concomitant]
     Active Substance: ACETAMINOPHEN
     Dosage: UNK
     Dates: start: 20190618
  11. P-TOL [Concomitant]
     Active Substance: FERRIC OXYHYDROXIDE
  12. FOSRENOL [Concomitant]
     Active Substance: LANTHANUM CARBONATE
  13. LANSOPRAZOLE. [Concomitant]
     Active Substance: LANSOPRAZOLE
  14. CARTIN [Concomitant]

REACTIONS (5)
  - Oxygen saturation decreased [Recovered/Resolved]
  - Pyrexia [Recovered/Resolved]
  - Drug-induced liver injury [Recovering/Resolving]
  - Jaundice [Recovered/Resolved]
  - Prescribed underdose [Unknown]

NARRATIVE: CASE EVENT DATE: 20190623
